FAERS Safety Report 24289177 (Version 1)
Quarter: 2024Q3

REPORT INFORMATION
  Report Type: Spontaneous
  Country: GB (occurrence: GB)
  Receive Date: 20240906
  Receipt Date: 20240906
  Transmission Date: 20241017
  Serious: Yes (Other)
  Sender: SANDOZ
  Company Number: None

PATIENT
  Age: 63 Year
  Sex: Female
  Weight: 86 kg

DRUGS (3)
  1. ROSUVASTATIN [Suspect]
     Active Substance: ROSUVASTATIN\ROSUVASTATIN CALCIUM
     Indication: Hypercholesterolaemia
     Dosage: 50 MG
     Route: 065
     Dates: start: 20240830, end: 20240903
  2. FLUOXETINE [Concomitant]
     Active Substance: FLUOXETINE HYDROCHLORIDE
     Indication: Adjustment disorder with depressed mood
     Route: 065
  3. RAMIPRIL [Concomitant]
     Active Substance: RAMIPRIL
     Indication: Hypertension
     Route: 065

REACTIONS (13)
  - Dizziness postural [Recovered/Resolved]
  - Electric shock sensation [Recovering/Resolving]
  - Decreased appetite [Recovering/Resolving]
  - Hot flush [Recovering/Resolving]
  - Nervousness [Not Recovered/Not Resolved]
  - Oesophagitis [Recovering/Resolving]
  - Dyspepsia [Recovered/Resolved with Sequelae]
  - Tremor [Recovered/Resolved]
  - Paraesthesia [Recovering/Resolving]
  - Palpitations [Recovering/Resolving]
  - Constipation [Recovering/Resolving]
  - Arthralgia [Recovering/Resolving]
  - Insomnia [Recovering/Resolving]

NARRATIVE: CASE EVENT DATE: 20240830
